FAERS Safety Report 5731439-X (Version None)
Quarter: 2008Q2

REPORT INFORMATION
  Report Type: 
  Country: None (occurrence: None)
  Receive Date: 20080506
  Receipt Date: 20080506
  Transmission Date: 20081010
  Serious: No
  Sender: FDA-Public Use
  Company Number: None

PATIENT
  Age: 73 Year
  Sex: Female
  Weight: 49.8957 kg

DRUGS (2)
  1. COREG [Suspect]
     Indication: ATRIAL FIBRILLATION
     Dosage: 3.125 MG BID PO
     Route: 048
     Dates: start: 20060101
  2. COREG [Suspect]
     Indication: CARDIOMYOPATHY
     Dosage: 3.125 MG BID PO
     Route: 048
     Dates: start: 20060101

REACTIONS (3)
  - DIZZINESS [None]
  - DRUG INEFFECTIVE [None]
  - NAUSEA [None]
